FAERS Safety Report 17468630 (Version 1)
Quarter: 2020Q1

REPORT INFORMATION
  Report Type: Spontaneous
  Country: SA (occurrence: SA)
  Receive Date: 20200227
  Receipt Date: 20200227
  Transmission Date: 20200409
  Serious: Yes (Hospitalization, Other)
  Sender: FDA-Public Use
  Company Number: SA-UCBSA-2020008228

PATIENT
  Age: 7 Year
  Sex: Female

DRUGS (6)
  1. VALPROIC ACID. [Suspect]
     Active Substance: VALPROIC ACID
     Indication: BENIGN ROLANDIC EPILEPSY
     Dosage: UNK
  2. CARBAMAZEPINE. [Suspect]
     Active Substance: CARBAMAZEPINE
     Indication: BENIGN ROLANDIC EPILEPSY
     Dosage: UNK
  3. LEVETIRACETAM. [Suspect]
     Active Substance: LEVETIRACETAM
     Indication: BENIGN ROLANDIC EPILEPSY
     Dosage: UNK
  4. TOPIRAMATE. [Suspect]
     Active Substance: TOPIRAMATE
     Indication: BENIGN ROLANDIC EPILEPSY
     Dosage: UNK
  5. PHENYTOIN. [Suspect]
     Active Substance: PHENYTOIN
     Indication: BENIGN ROLANDIC EPILEPSY
     Dosage: UNK
  6. PHENOBARBITONE [PHENOBARBITAL] [Suspect]
     Active Substance: PHENOBARBITAL
     Indication: BENIGN ROLANDIC EPILEPSY
     Dosage: UNK

REACTIONS (3)
  - Generalised tonic-clonic seizure [Unknown]
  - Seizure [Recovering/Resolving]
  - Multiple-drug resistance [Unknown]
